FAERS Safety Report 11268014 (Version 1)
Quarter: 2015Q3

REPORT INFORMATION
  Report Type: Spontaneous
  Country: IN (occurrence: IN)
  Receive Date: 20150713
  Receipt Date: 20150713
  Transmission Date: 20151125
  Serious: Yes (Death, Other)
  Sender: FDA-Public Use
  Company Number: IN-009507513-1507IND005111

PATIENT
  Age: 75 Year
  Sex: Female
  Weight: 42 kg

DRUGS (1)
  1. JANUVIA [Suspect]
     Active Substance: SITAGLIPTIN PHOSPHATE
     Indication: DIABETES MELLITUS
     Dosage: DOSE:1(UNIT NOT REPORTED); QD
     Route: 048

REACTIONS (1)
  - Neoplasm malignant [Fatal]
